FAERS Safety Report 9014794 (Version 2)
Quarter: 2013Q2

REPORT INFORMATION
  Report Type: Report from Study
  Country: DE (occurrence: DE)
  Receive Date: 20130115
  Receipt Date: 20130424
  Transmission Date: 20140414
  Serious: Yes (Hospitalization)
  Sender: FDA-Public Use
  Company Number: DE-GILEAD-2013-0067375

PATIENT
  Age: 70 Year
  Sex: Female

DRUGS (10)
  1. AZTREONAM LYSINE [Suspect]
     Indication: BRONCHIECTASIS
     Dosage: 75 MG, TID
     Route: 055
     Dates: start: 20121218
  2. VIANI [Concomitant]
     Indication: BRONCHIECTASIS
     Dosage: 550 DF, UNK
     Dates: start: 201204
  3. AVAMYS [Concomitant]
     Indication: RHINITIS ALLERGIC
     Dosage: UNK
     Route: 045
     Dates: start: 20120806
  4. SALBUTAMOL [Concomitant]
     Indication: ASTHMA
     Dosage: UNK
     Route: 055
     Dates: start: 200006
  5. MADOPAR [Concomitant]
     Indication: PARKINSON^S DISEASE
     Dosage: 250 MG, UNK
     Dates: start: 200806
  6. MODUTAB [Concomitant]
     Indication: PARKINSON^S DISEASE
     Dosage: 12 MG, UNK
     Dates: start: 200806
  7. ENALAPRIL [Concomitant]
     Indication: HYPERTENSION
     Dosage: UNK
     Dates: start: 201201
  8. HCT [Concomitant]
     Indication: HYPERTENSION
     Dosage: 12.5 MG, UNK
     Dates: start: 200806
  9. MOXONIDIN [Concomitant]
     Indication: HYPERTENSION
     Dosage: UNK
     Dates: start: 20120801
  10. TELFAST [Concomitant]
     Indication: RHINITIS ALLERGIC
     Dosage: UNK
     Dates: start: 20120801

REACTIONS (1)
  - Bronchitis [Recovered/Resolved]
